FAERS Safety Report 9844327 (Version 1)
Quarter: 2014Q1

REPORT INFORMATION
  Report Type: Spontaneous
  Country: CA (occurrence: CA)
  Receive Date: 20140127
  Receipt Date: 20140127
  Transmission Date: 20141002
  Serious: Yes (Disabling)
  Sender: FDA-Public Use
  Company Number: CA-AMGEN-CANSP2014004438

PATIENT
  Age: 88 Year
  Sex: Female

DRUGS (9)
  1. PROLIA [Suspect]
     Indication: PRODUCT USED FOR UNKNOWN INDICATION
     Dosage: 60 MG, Q6MO
     Route: 058
  2. CLOPIDOGREL [Concomitant]
  3. EZETROL [Concomitant]
     Route: 065
  4. IMDUR [Concomitant]
     Dosage: 60 MG, UNK
     Route: 065
  5. MONOPRIL [Concomitant]
     Route: 065
  6. NITROGLYCERINE [Concomitant]
     Route: 065
  7. PANTOPRAZOLE [Concomitant]
     Route: 065
  8. SOTALOL [Concomitant]
     Route: 065
  9. TRIAZIDE                           /00065401/ [Concomitant]
     Dosage: UNK
     Route: 065

REACTIONS (3)
  - Local swelling [Not Recovered/Not Resolved]
  - Erythema [Not Recovered/Not Resolved]
  - Pain in extremity [Not Recovered/Not Resolved]
